FAERS Safety Report 7133895-1 (Version None)
Quarter: 2010Q4

REPORT INFORMATION
  Report Type: 
  Country: None (occurrence: None)
  Receive Date: 20101203
  Receipt Date: 20101025
  Transmission Date: 20110411
  Serious: Yes (Other)
  Sender: FDA-Public Use
  Company Number: US-BAYER-201019933NA

PATIENT

DRUGS (13)
  1. YASMIN [Suspect]
     Route: 048
     Dates: start: 20080101
  2. YAZ [Suspect]
     Indication: CONTRACEPTION
     Route: 048
     Dates: start: 20090309
  3. UNCODEABLE ^UNCLASSIFIABLE^ [Concomitant]
     Dosage: DAILY DOSE 500 MG
     Route: 048
  4. ZOLOFT [Concomitant]
     Indication: DEPRESSION
     Dosage: DAILY DOSE 50 MG
     Route: 048
  5. WELLBUTRIN [Concomitant]
     Dosage: DAILY DOSE 150 MG
     Route: 048
  6. MAXALT [Concomitant]
     Dosage: DAILY DOSE 10 MG
     Route: 048
  7. ADDERALL 10 [Concomitant]
     Dosage: 1  CAPSULE QD IN AM
     Route: 048
  8. IBUPROFEN [Concomitant]
     Route: 065
  9. UNKNOWN DRUG [Concomitant]
     Indication: DYSPNOEA
     Route: 065
     Dates: start: 20000101
  10. UNKNOWN DRUG [Concomitant]
     Indication: ASTHMA
  11. LANSOPRAZOLE [Concomitant]
     Dosage: CAPSULE DELAYED QD BEFORE MEAL
     Route: 048
  12. ASTELIN [Concomitant]
     Dosage: 2 SPRAYS IN EACH NOSTRIL TWICE QD.
     Route: 055
  13. BENTYL [Concomitant]
     Route: 048

REACTIONS (2)
  - CHOLECYSTITIS CHRONIC [None]
  - DYSPNOEA [None]
